APPROVED DRUG PRODUCT: DOCETAXEL
Active Ingredient: DOCETAXEL
Strength: 40MG/ML
Dosage Form/Route: INJECTABLE;INJECTION
Application: A203170 | Product #001
Applicant: JIANGSU HENGRUI PHARMACEUTICALS CO LTD
Approved: Feb 15, 2017 | RLD: No | RS: No | Type: DISCN